FAERS Safety Report 6333600-2 (Version None)
Quarter: 2009Q3

REPORT INFORMATION
  Report Type: 
  Country: None (occurrence: None)
  Receive Date: 20090829
  Receipt Date: 20090605
  Transmission Date: 20100115
  Serious: No
  Sender: FDA-Public Use
  Company Number: US-ABBOTT-09P-163-0572680-00

PATIENT
  Sex: Male
  Weight: 90.8 kg

DRUGS (9)
  1. SIMCOR [Suspect]
     Indication: HIGH DENSITY LIPOPROTEIN DECREASED
     Dosage: 500/20MG X 2 TABLETS DAILY
     Route: 048
     Dates: start: 20090314
  2. METOPROLOL [Concomitant]
     Indication: HYPERTENSION
  3. LISINOPRIL [Concomitant]
     Indication: HYPERTENSION
  4. MECLIZINE [Concomitant]
     Indication: DIZZINESS
  5. MECLIZINE [Concomitant]
     Indication: ACOUSTIC NEUROMA
  6. FISH OIL [Concomitant]
     Indication: DRUG USE FOR UNKNOWN INDICATION
  7. GLUCOSAMINE [Concomitant]
     Indication: DRUG USE FOR UNKNOWN INDICATION
  8. FLAXSEED OIL [Concomitant]
     Indication: DRUG USE FOR UNKNOWN INDICATION
  9. ASPIRIN [Concomitant]
     Indication: PROPHYLAXIS

REACTIONS (1)
  - FLUSHING [None]
